FAERS Safety Report 6424746-9 (Version None)
Quarter: 2009Q4

REPORT INFORMATION
  Report Type: 
  Country: None (occurrence: None)
  Receive Date: 20091030
  Receipt Date: 20091030
  Transmission Date: 20100525
  Serious: No
  Sender: FDA-Public Use
  Company Number: None

PATIENT
  Age: 41 Year

DRUGS (1)
  1. ETOMIDATE [Suspect]
     Indication: ELECTROCONVULSIVE THERAPY
     Dosage: 18 MG OTHER IV
     Route: 042
     Dates: start: 20061211, end: 20061211

REACTIONS (3)
  - CONFUSIONAL STATE [None]
  - CONVULSION [None]
  - LOSS OF CONSCIOUSNESS [None]
